FAERS Safety Report 7130534-0 (Version None)
Quarter: 2010Q4

REPORT INFORMATION
  Report Type: 
  Country: None (occurrence: None)
  Receive Date: 20101201
  Receipt Date: 20101124
  Transmission Date: 20110411
  Serious: Yes (Death, Hospitalization)
  Sender: FDA-Public Use
  Company Number: US-BRISTOL-MYERS SQUIBB COMPANY-15209117

PATIENT
  Age: 71 Year
  Sex: Female

DRUGS (15)
  1. IXEMPRA KIT [Suspect]
     Indication: BREAST CANCER
     Dosage: INTERRUPTED ON 16JUL2010 26MG 09JUL-02SEP10
     Route: 042
     Dates: start: 20100709, end: 20100902
  2. CARBOPLATIN [Suspect]
     Indication: BREAST CANCER
     Dosage: INTERRUPTED ON 16JUL2010. 190MG:09JUL TO 02SEP2010
     Route: 042
     Dates: start: 20100709, end: 20100902
  3. MECLIZINE [Concomitant]
     Indication: PROPHYLAXIS
     Route: 048
     Dates: start: 20100104
  4. ALDACTONE [Concomitant]
     Indication: ASCITES
     Dosage: 1DF=1TABS
     Route: 048
     Dates: start: 20100720
  5. DARVOCET [Concomitant]
     Indication: BONE PAIN
     Dosage: 1DF=1 TO 2 TABS PRN
     Route: 048
     Dates: start: 20091111
  6. DARVOCET [Concomitant]
     Indication: PAIN IN EXTREMITY
     Dosage: 1DF=1 TO 2 TABS PRN
     Route: 048
     Dates: start: 20091111
  7. DARVOCET [Concomitant]
     Indication: HEADACHE
     Dosage: 1DF=1 TO 2 TABS PRN
     Route: 048
     Dates: start: 20091111
  8. DOCUSATE SODIUM [Concomitant]
     Dosage: 2DF= 2 TABS
     Route: 048
     Dates: start: 20100720
  9. FENTANYL [Concomitant]
     Indication: BONE PAIN
     Dosage: 1DF=1PATCH 150MCG
     Dates: start: 20091101
  10. FENTANYL [Concomitant]
     Indication: PAIN IN EXTREMITY
     Dosage: 1DF=1PATCH 150MCG
     Dates: start: 20091101
  11. KLOR-CON [Concomitant]
     Indication: PROPHYLAXIS
     Dosage: 1DF= 1 TABS
     Route: 048
     Dates: start: 20100720
  12. LORAZEPAM [Concomitant]
     Indication: PROPHYLAXIS
     Dates: start: 20100819
  13. ADDERALL 10 [Concomitant]
     Indication: PROPHYLAXIS
     Route: 048
     Dates: start: 20100915
  14. SYNTHROID [Concomitant]
     Indication: HYPOTHYROIDISM
     Route: 048
     Dates: start: 20090101
  15. POTASSIUM CHLORIDE [Concomitant]
     Indication: PROPHYLAXIS
     Route: 048
     Dates: start: 20100730

REACTIONS (9)
  - BACTERAEMIA [None]
  - BREAST CANCER METASTATIC [None]
  - DIASTOLIC DYSFUNCTION [None]
  - ELECTROCARDIOGRAM T WAVE ABNORMAL [None]
  - MALIGNANT NEOPLASM PROGRESSION [None]
  - PNEUMONIA [None]
  - PULMONARY EMBOLISM [None]
  - SINUS TACHYCARDIA [None]
  - SUPRAVENTRICULAR EXTRASYSTOLES [None]
